FAERS Safety Report 6090715-4 (Version None)
Quarter: 2009Q1

REPORT INFORMATION
  Report Type: 
  Country: None (occurrence: None)
  Receive Date: 20090224
  Receipt Date: 20090128
  Transmission Date: 20090719
  Serious: No
  Sender: FDA-Public Use
  Company Number: US-ABBOTT-09P-163-0500410-00

PATIENT
  Sex: Male
  Weight: 83.99 kg

DRUGS (5)
  1. SIMCOR [Suspect]
     Indication: BLOOD CHOLESTEROL INCREASED
     Dosage: 1000MG/20MG, EVERY OTHER DAY
     Dates: start: 20081001, end: 20090128
  2. ASPIRIN [Concomitant]
     Indication: PROPHYLAXIS
     Dates: end: 20090128
  3. ASPIRIN [Concomitant]
     Indication: ADVERSE DRUG REACTION
  4. CRESTOR [Concomitant]
     Indication: BLOOD CHOLESTEROL INCREASED
     Dates: start: 20040101, end: 20081001
  5. CRESTOR [Concomitant]
     Dates: start: 20090128

REACTIONS (6)
  - ACNE [None]
  - OROPHARYNGEAL PAIN [None]
  - PARAESTHESIA [None]
  - PRURITUS [None]
  - RASH [None]
  - RHINORRHOEA [None]
